FAERS Safety Report 10589600 (Version 2)
Quarter: 2015Q1

REPORT INFORMATION
  Report Type: Spontaneous
  Country: US (occurrence: None)
  Receive Date: 20141114
  Receipt Date: 20150306
  Transmission Date: 20150720
  Serious: Yes (Other)
  Sender: FDA-Public Use
  Company Number: KAD201411-001457

PATIENT
  Age: 55 Year
  Sex: Male

DRUGS (11)
  1. RIBAVIRIN (RIBAVIRIN) [Suspect]
     Active Substance: RIBAVIRIN
     Indication: HEPATITIS C
  2. LAMIVUDINE (LAMIVUDINE) [Concomitant]
     Active Substance: LAMIVUDINE
  3. TENOFOVIR (TENOFOVIR) [Concomitant]
  4. SOFOSBUVIR (SOFOSBUVIR) [Suspect]
     Active Substance: SOFOSBUVIR
     Indication: HEPATITIS C
  5. ATAZANAVIR (ATAZANAVIR) [Concomitant]
     Active Substance: ATAZANAVIR
  6. PEGYLATED INTERFERON NOS [Suspect]
     Active Substance: PEGINTERFERON ALFA-2A OR PEGINTERFERON ALFA-2B OR PEGINTERFERON BETA-1A OR PEGINTERFERON LAMBDA-1A
     Indication: CHRONIC HEPATITIS C
  7. RILVIRIPINE (RILVIRIPINE) [Concomitant]
  8. INTERFERON ALFACON-L [Suspect]
     Active Substance: INTERFERON ALFACON-1
     Indication: HEPATITIS C
  9. CYCLOSPORINE (CYCLOSPORINE) [Concomitant]
  10. SIMEPREVIR (SIMEPREVIR) [Suspect]
     Active Substance: SIMEPREVIR
     Indication: HEPATITIS C
  11. MYCOPHENOLATE MOFETIL (MYCOPHENOLATE MOFETIL) [Concomitant]
     Active Substance: MYCOPHENOLATE MOFETIL

REACTIONS (3)
  - Gastrointestinal disorder [None]
  - Hepatitis C [None]
  - No therapeutic response [None]
